FAERS Safety Report 4320805-5 (Version None)
Quarter: 2004Q1

REPORT INFORMATION
  Report Type: 
  Country: None (occurrence: None)
  Receive Date: 20040318
  Receipt Date: 20040305
  Transmission Date: 20041129
  Serious: Yes (Hospitalization)
  Sender: FDA-Public Use
  Company Number: UK068755

PATIENT
  Age: 1 Year
  Sex: Female

DRUGS (1)
  1. NEUPOGEN [Suspect]
     Indication: AGRANULOCYTOSIS
     Dosage: 50 MCG/KG, SC
     Route: 058
     Dates: end: 20040304

REACTIONS (1)
  - OVERDOSE [None]
